FAERS Safety Report 5803218-6 (Version None)
Quarter: 2008Q3

REPORT INFORMATION
  Report Type: 
  Country: None (occurrence: None)
  Receive Date: 20080708
  Receipt Date: 20080627
  Transmission Date: 20090109
  Serious: Yes (Other)
  Sender: FDA-Public Use
  Company Number: US-ROCHE-573360

PATIENT
  Age: 30 Year
  Sex: Female

DRUGS (5)
  1. SAQUINAVIR [Suspect]
     Indication: DRUG USE FOR UNKNOWN INDICATION
     Dosage: PATIENT RECEIVED HARD GELATIN CAPSULES, TOTAL DAILY DOSE: 2000
     Route: 048
     Dates: start: 20080301
  2. SAQUINAVIR SOFT GELATINE CAPSULES [Suspect]
     Indication: DRUG USE FOR UNKNOWN INDICATION
     Dosage: TOTAL DAILY DOSE: 200
     Route: 048
     Dates: start: 20080301
  3. NELFINAVIR [Suspect]
     Indication: DRUG USE FOR UNKNOWN INDICATION
     Dosage: TOTAL DAILY DOSE: 2500
     Route: 048
     Dates: end: 20080301
  4. LAMIVUDINE AND ZIDOVUDINE [Suspect]
     Indication: DRUG USE FOR UNKNOWN INDICATION
     Dosage: TOTAL DAILY DOSE: 900
     Route: 048
  5. GLUCOPHAGE [Concomitant]
     Dosage: PATIENT RECEIVED THE DRUG IN THE FIRST TRIMESTER

REACTIONS (1)
  - ABORTION SPONTANEOUS [None]
